FAERS Safety Report 16733322 (Version 2)
Quarter: 2019Q3

REPORT INFORMATION
  Report Type: Report from Study
  Country: BR (occurrence: BR)
  Receive Date: 20190823
  Receipt Date: 20190829
  Transmission Date: 20191005
  Serious: Yes (Other)
  Sender: FDA-Public Use
  Company Number: BR-UCBSA-2019025136

PATIENT
  Age: 44 Year
  Sex: Female
  Weight: 64 kg

DRUGS (8)
  1. PREDNISONE. [Concomitant]
     Active Substance: PREDNISONE
     Indication: RHEUMATOID ARTHRITIS
     Dosage: UNK UNK, ONCE DAILY (QD)
     Dates: start: 1999
  2. REUQUINOL [Concomitant]
     Active Substance: HYDROXYCHLOROQUINE SULFATE
     Indication: RHEUMATOID ARTHRITIS
     Dosage: 400 MILLIGRAM, ONCE DAILY (QD)
     Route: 048
     Dates: start: 201811
  3. FENERGAN [PROMETHAZINE] [Concomitant]
     Indication: PRURITUS
  4. HYDROCHLOROTHIAZIDE. [Concomitant]
     Active Substance: HYDROCHLOROTHIAZIDE
     Indication: HYPERTENSION
     Dosage: UNK 1 X A DAY
     Route: 048
     Dates: start: 2009
  5. CERTOLIZUMAB PEGOL [Suspect]
     Active Substance: CERTOLIZUMAB PEGOL
     Dosage: 200 MILLIGRAM, EV 15 DAYS
     Route: 058
     Dates: start: 20181212
  6. FENERGAN [PROMETHAZINE] [Concomitant]
     Indication: ERYTHEMA
  7. CERTOLIZUMAB PEGOL [Suspect]
     Active Substance: CERTOLIZUMAB PEGOL
     Indication: RHEUMATOID ARTHRITIS
     Dosage: 200 MILLIGRAM, EV 15 DAYS
     Route: 058
     Dates: start: 201811, end: 20190717
  8. LOSARTAN. [Concomitant]
     Active Substance: LOSARTAN
     Indication: HYPERTENSION
     Dosage: UNK 1 X A DAY
     Route: 048
     Dates: start: 2009

REACTIONS (10)
  - Generalised erythema [Recovered/Resolved]
  - Amnesia [Recovering/Resolving]
  - Alopecia [Recovering/Resolving]
  - Pruritus [Recovered/Resolved]
  - Nerve injury [Unknown]
  - Nausea [Unknown]
  - Dry skin [Recovering/Resolving]
  - Aptyalism [Recovering/Resolving]
  - Pain [Recovering/Resolving]
  - Liver disorder [Recovering/Resolving]

NARRATIVE: CASE EVENT DATE: 20181212
